FAERS Safety Report 5051508-X (Version None)
Quarter: 2006Q3

REPORT INFORMATION
  Report Type: 
  Country: None (occurrence: None)
  Receive Date: 20060711
  Receipt Date: 20060628
  Transmission Date: 20061208
  Serious: Yes (Hospitalization)
  Sender: FDA-Public Use
  Company Number: 8017601

PATIENT
  Age: 40 Year
  Sex: Female
  Weight: 61.5 kg

DRUGS (4)
  1. KEPPRA [Suspect]
     Indication: CONVULSION
     Dosage: 500 MG 2/D PO
     Route: 048
     Dates: start: 20030101
  2. DILANTIN [Concomitant]
  3. CENTRUM [Concomitant]
  4. CALCIUM MAGNESIUM ZINC [Concomitant]

REACTIONS (1)
  - LOWER LIMB FRACTURE [None]
